FAERS Safety Report 6806561-7 (Version None)
Quarter: 2010Q2

REPORT INFORMATION
  Report Type: 
  Country: None (occurrence: None)
  Receive Date: 20100629
  Receipt Date: 20080304
  Transmission Date: 20101027
  Serious: No
  Sender: FDA-Public Use
  Company Number: US-PFIZER INC-2008017238

PATIENT
  Sex: Male
  Weight: 83.91 kg

DRUGS (7)
  1. ALDACTONE [Suspect]
  2. LISINOPRIL [Concomitant]
  3. FUROSEMIDE [Concomitant]
  4. DIGOXIN [Concomitant]
  5. TOPROL-XL [Concomitant]
  6. SPIRONOLACTONE [Concomitant]
  7. POTASSIUM [Concomitant]

REACTIONS (4)
  - HEADACHE [None]
  - MUSCLE TWITCHING [None]
  - PRESYNCOPE [None]
  - VISION BLURRED [None]
